FAERS Safety Report 23514036 (Version 1)
Quarter: 2024Q1

REPORT INFORMATION
  Report Type: Report from Study
  Country: RU (occurrence: None)
  Receive Date: 20240212
  Receipt Date: 20240212
  Transmission Date: 20240410
  Serious: Yes (Hospitalization, Other)
  Sender: FDA-Public Use
  Company Number: 2024A034672

PATIENT
  Age: 17 Year
  Sex: Male
  Weight: 57 kg

DRUGS (2)
  1. SELUMETINIB [Suspect]
     Active Substance: SELUMETINIB
     Indication: Neurofibroma
     Dosage: 90.0MG EVERY 8 - 12 HOURS
     Route: 048
     Dates: start: 20211018, end: 20230111
  2. CHOLECALCIFEROL [Concomitant]
     Active Substance: CHOLECALCIFEROL
     Indication: Neurofibroma
     Dosage: 3000 IU90.0MG EVERY 8 - 12 HOURS

REACTIONS (5)
  - Abscess [Recovered/Resolved]
  - Furuncle [Recovered/Resolved]
  - Inflammation [Recovered/Resolved]
  - Thrombophlebitis [Recovered/Resolved]
  - Carbuncle [Recovered/Resolved]

NARRATIVE: CASE EVENT DATE: 20240111
